FAERS Safety Report 23460539 (Version 3)
Quarter: 2024Q2

REPORT INFORMATION
  Report Type: Report from Study
  Country: US (occurrence: None)
  Receive Date: 20240131
  Receipt Date: 20240410
  Transmission Date: 20240715
  Serious: Yes (Life-Threatening, Other)
  Sender: FDA-Public Use
  Company Number: 2024A022647

PATIENT
  Age: 21731 Day
  Sex: Female

DRUGS (2)
  1. FASENRA [Suspect]
     Active Substance: BENRALIZUMAB
     Route: 058
  2. TEZEPELUMAB-EKKO [Suspect]
     Active Substance: TEZEPELUMAB-EKKO

REACTIONS (6)
  - Loss of consciousness [Unknown]
  - Asthma [Unknown]
  - Respiratory syncytial virus infection [Unknown]
  - Illness [Unknown]
  - Decreased activity [Unknown]
  - Drug ineffective [Unknown]

NARRATIVE: CASE EVENT DATE: 20231121
